FAERS Safety Report 7999440-3 (Version None)
Quarter: 2011Q4

REPORT INFORMATION
  Report Type: 
  Country: None (occurrence: None)
  Receive Date: 20111221
  Receipt Date: 20111209
  Transmission Date: 20120403
  Serious: Yes (Hospitalization)
  Sender: FDA-Public Use
  Company Number: GB-PFIZER INC-2011301738

PATIENT
  Age: 74 Year
  Sex: Female

DRUGS (3)
  1. ALENDRONIC ACID [Suspect]
     Dosage: 70 MG, WEEKLY
     Route: 065
  2. PANADEINE CO [Suspect]
     Dosage: UNK
  3. IBUPROFEN [Suspect]
     Dosage: UNK
     Route: 065

REACTIONS (4)
  - FATIGUE [None]
  - DYSPNOEA [None]
  - GASTROINTESTINAL HAEMORRHAGE [None]
  - DIZZINESS [None]
